FAERS Safety Report 21470038 (Version 1)
Quarter: 2022Q4

REPORT INFORMATION
  Report Type: Spontaneous
  Country: JP (occurrence: JP)
  Receive Date: 20221018
  Receipt Date: 20221018
  Transmission Date: 20230112
  Serious: Yes (Other)
  Sender: FDA-Public Use
  Company Number: JP-TAKEDA-2022TUS072283

PATIENT
  Age: 96 Year
  Sex: Female
  Weight: 48.8 kg

DRUGS (1)
  1. CERCINE [Suspect]
     Active Substance: DIAZEPAM
     Indication: Status epilepticus
     Route: 065

REACTIONS (1)
  - Respiratory depression [Unknown]
